FAERS Safety Report 22020059 (Version 1)
Quarter: 2023Q1

REPORT INFORMATION
  Report Type: Spontaneous
  Country: US (occurrence: US)
  Receive Date: 20230222
  Receipt Date: 20230222
  Transmission Date: 20230418
  Serious: No
  Sender: FDA-Public Use
  Company Number: US-GSKCCFUS-Case-01633281_AE-92201

PATIENT
  Sex: Female

DRUGS (1)
  1. BREO ELLIPTA [Suspect]
     Active Substance: FLUTICASONE FUROATE\VILANTEROL TRIFENATATE
     Indication: Product used for unknown indication
     Dosage: 1 PUFF(S) (100/25 MCG)
     Route: 055

REACTIONS (5)
  - Blood pressure increased [Unknown]
  - Arthralgia [Unknown]
  - Cough [Unknown]
  - Rhinorrhoea [Unknown]
  - Heart rate irregular [Unknown]
